FAERS Safety Report 24098782 (Version 1)
Quarter: 2024Q3

REPORT INFORMATION
  Report Type: Spontaneous
  Country: US (occurrence: US)
  Receive Date: 20240716
  Receipt Date: 20240716
  Transmission Date: 20241016
  Serious: No
  Sender: NOVO NORDISK
  Company Number: US-NOVOPROD-1178848

PATIENT
  Sex: Female

DRUGS (3)
  1. OZEMPIC [Suspect]
     Active Substance: SEMAGLUTIDE
     Indication: Blood cholesterol increased
     Dosage: 0.25MG
     Route: 058
     Dates: start: 20230112
  2. OZEMPIC [Suspect]
     Active Substance: SEMAGLUTIDE
     Indication: Blood pressure increased
  3. OZEMPIC [Suspect]
     Active Substance: SEMAGLUTIDE
     Indication: Overweight

REACTIONS (3)
  - Increased appetite [Not Recovered/Not Resolved]
  - Drug dose titration not performed [Unknown]
  - Product use in unapproved indication [Not Recovered/Not Resolved]

NARRATIVE: CASE EVENT DATE: 20240310
